FAERS Safety Report 12729289 (Version 1)
Quarter: 2016Q3

REPORT INFORMATION
  Report Type: Spontaneous
  Country: US (occurrence: US)
  Receive Date: 20160908
  Receipt Date: 20160908
  Transmission Date: 20161109
  Serious: Yes (Life-Threatening, Hospitalization)
  Sender: FDA-Public Use
  Company Number: None

PATIENT
  Age: 72 Year
  Sex: Female
  Weight: 79 kg

DRUGS (1)
  1. RUXOLITINIB [Suspect]
     Active Substance: RUXOLITINIB
     Indication: MYELOFIBROSIS

REACTIONS (6)
  - Pyrexia [None]
  - Respiratory failure [None]
  - Abdominal distension [None]
  - Disseminated tuberculosis [None]
  - Depressed level of consciousness [None]
  - Cough [None]

NARRATIVE: CASE EVENT DATE: 20160829
